FAERS Safety Report 25033067 (Version 3)
Quarter: 2025Q1

REPORT INFORMATION
  Report Type: Spontaneous
  Country: ES (occurrence: ES)
  Receive Date: 20250303
  Receipt Date: 20250327
  Transmission Date: 20250408
  Serious: Yes (Death, Other)
  Sender: MYLAN
  Company Number: ES-ETHYPHARM-2025000383

PATIENT
  Sex: Male

DRUGS (9)
  1. FENTANYL [Interacting]
     Active Substance: FENTANYL
     Indication: Product used for unknown indication
  2. VENLAFAXINE [Interacting]
     Active Substance: VENLAFAXINE HYDROCHLORIDE
     Indication: Product used for unknown indication
  3. QUETIAPINE [Interacting]
     Active Substance: QUETIAPINE
     Indication: Product used for unknown indication
  4. ALPRAZOLAM [Interacting]
     Active Substance: ALPRAZOLAM
     Indication: Product used for unknown indication
  5. ZOLPIDEM [Interacting]
     Active Substance: ZOLPIDEM TARTRATE
     Indication: Product used for unknown indication
  6. PROPOFOL [Interacting]
     Active Substance: PROPOFOL
     Indication: Product used for unknown indication
  7. CLONAZEPAM [Interacting]
     Active Substance: CLONAZEPAM
     Indication: Product used for unknown indication
  8. DIAZEPAM [Interacting]
     Active Substance: DIAZEPAM
     Indication: Product used for unknown indication
  9. NAPROXEN [Concomitant]
     Active Substance: NAPROXEN
     Indication: Product used for unknown indication

REACTIONS (9)
  - Acute pulmonary oedema [Fatal]
  - Non-cardiogenic pulmonary oedema [Fatal]
  - Intentional product misuse [Fatal]
  - Drug abuse [Fatal]
  - Drug interaction [Fatal]
  - Toxicity to various agents [Fatal]
  - Overdose [Fatal]
  - Suicide attempt [Unknown]
  - Drug dependence [Unknown]
